FAERS Safety Report 9851451 (Version 3)
Quarter: 2014Q2

REPORT INFORMATION
  Report Type: Spontaneous
  Country: US (occurrence: US)
  Receive Date: 20140129
  Receipt Date: 20140409
  Transmission Date: 20141212
  Serious: Yes (Hospitalization, Other)
  Sender: FDA-Public Use
  Company Number: US-BIOGENIDEC-2014BI007040

PATIENT
  Age: 55 Year
  Sex: Female

DRUGS (22)
  1. TYSABRI [Suspect]
     Indication: MULTIPLE SCLEROSIS
     Route: 042
     Dates: start: 20120612, end: 20140122
  2. FLUOXETINE [Concomitant]
  3. ISOSORBIDE MONONITRATE [Concomitant]
  4. AMLODIPINE [Concomitant]
  5. SODIUM CHLORIDE SOLUTION [Concomitant]
  6. GABAPENTIN [Concomitant]
  7. METOCLOPRAMIDE [Concomitant]
  8. INSULIN GLARGINE [Concomitant]
  9. ASPIRIN [Concomitant]
  10. ALPRAZOLAM [Concomitant]
  11. PANTOPRAZOLE [Concomitant]
  12. PRAVASTATIN [Concomitant]
  13. TRAMADOL [Concomitant]
  14. LOSARTAN [Concomitant]
  15. HYDRALAZINE [Concomitant]
  16. DOXAZOSIN [Concomitant]
  17. CARVEDILOL [Concomitant]
  18. INSULIN LISPRO [Concomitant]
  19. VITAMIN B COMPLEX [Concomitant]
  20. LORATADINE [Concomitant]
  21. VITAMIN D3 [Concomitant]
  22. FUROSEMIDE [Concomitant]

REACTIONS (16)
  - Essential hypertension [Unknown]
  - Hyperglycaemia [Unknown]
  - Neck pain [Unknown]
  - Vomiting [Unknown]
  - Nausea [Unknown]
  - Diabetic nephropathy [Not Recovered/Not Resolved]
  - Herpes zoster [Not Recovered/Not Resolved]
  - Hypothyroidism [Unknown]
  - Infection [Unknown]
  - Hepatotoxicity [Not Recovered/Not Resolved]
  - Impaired gastric emptying [Unknown]
  - Renal failure [Not Recovered/Not Resolved]
  - Hepatic steatosis [Not Recovered/Not Resolved]
  - Fatigue [Not Recovered/Not Resolved]
  - Aphasia [Not Recovered/Not Resolved]
  - Eye disorder [Unknown]
